FAERS Safety Report 9693166 (Version 3)
Quarter: 2013Q4

REPORT INFORMATION
  Report Type: Spontaneous
  Country: CO (occurrence: CO)
  Receive Date: 20131118
  Receipt Date: 20131230
  Transmission Date: 20140711
  Serious: Yes (Death, Hospitalization)
  Sender: FDA-Public Use
  Company Number: CO-NOVOPROD-392432

PATIENT
  Sex: 0

DRUGS (11)
  1. NOVOSEVEN RT [Suspect]
     Indication: HAEMOPHILIA
     Dosage: UNK
     Dates: start: 20131009, end: 20131103
  2. NOVOSEVEN RT [Suspect]
     Dosage: UNK
     Dates: start: 20131009, end: 20131103
  3. NOVOSEVEN RT [Suspect]
     Dosage: UNK
     Dates: start: 20131009, end: 20131103
  4. NOVOSEVEN RT [Suspect]
     Dosage: UNK
     Dates: start: 20131009, end: 20131103
  5. NOVOSEVEN RT [Suspect]
     Dosage: UNK
     Dates: start: 20131009, end: 20131103
  6. NOVOSEVEN RT [Suspect]
  7. NOVOSEVEN RT [Suspect]
  8. NOVOSEVEN RT [Suspect]
  9. NOVOSEVEN RT [Suspect]
  10. NOVOSEVEN RT [Suspect]
  11. NOVOSEVEN RT [Suspect]
     Dosage: UNK
     Dates: end: 20131103

REACTIONS (3)
  - Nosocomial infection [Fatal]
  - Retroperitoneal haematoma [Not Recovered/Not Resolved]
  - Haematuria [Not Recovered/Not Resolved]
